FAERS Safety Report 7738796-3 (Version None)
Quarter: 2011Q3

REPORT INFORMATION
  Report Type: 
  Country: None (occurrence: None)
  Receive Date: 20110908
  Receipt Date: 20110831
  Transmission Date: 20111222
  Serious: Yes (Other)
  Sender: FDA-Public Use
  Company Number: JP-B.I. PHARMACEUTICALS,INC./RIDGEFIELD-2011-BP-19078NB

PATIENT
  Sex: Female
  Weight: 60 kg

DRUGS (8)
  1. PRADAXA [Suspect]
     Indication: ATRIAL FIBRILLATION
     Dosage: 220 MG
     Route: 065
     Dates: start: 20110624
  2. DIOVAN [Concomitant]
     Dosage: 20 MG
     Route: 065
     Dates: start: 20110722
  3. NORVASC [Concomitant]
     Dosage: 5 MG
     Route: 065
     Dates: start: 20110722
  4. BEZATOL [Concomitant]
     Dosage: 200 MG
     Route: 065
     Dates: start: 20110722
  5. PRADAXA [Suspect]
     Dosage: 110 MG
     Route: 065
     Dates: start: 20110801, end: 20110807
  6. PRAVASTATIN SODIUM [Concomitant]
     Dosage: 10 MG
     Route: 065
     Dates: start: 20110722
  7. LASIX [Concomitant]
     Dosage: 10 MG
     Route: 065
     Dates: start: 20110722
  8. METFORMIN HCL [Concomitant]
     Dosage: 750 MG
     Route: 065
     Dates: start: 20110722

REACTIONS (2)
  - BLINDNESS UNILATERAL [None]
  - RETINAL HAEMORRHAGE [None]
